FAERS Safety Report 25600095 (Version 1)
Quarter: 2025Q3

REPORT INFORMATION
  Report Type: Spontaneous
  Country: EU (occurrence: EU)
  Receive Date: 20250724
  Receipt Date: 20250724
  Transmission Date: 20251021
  Serious: Yes (Other)
  Sender: ALKEM
  Company Number: EU-ALKEM LABORATORIES LIMITED-ES-ALKEM-2025-07835

PATIENT
  Age: 7 Decade
  Sex: Female

DRUGS (2)
  1. MESALAMINE [Suspect]
     Active Substance: MESALAMINE
     Indication: Colitis ulcerative
     Dosage: 3.5 GRAM, QD
     Route: 048
  2. MESALAMINE [Suspect]
     Active Substance: MESALAMINE
     Dosage: 3.2 GRAM, QD (DOSE REDUCED)
     Route: 048

REACTIONS (4)
  - Pulmonary toxicity [Recovering/Resolving]
  - Interstitial lung disease [Recovering/Resolving]
  - Respiratory symptom [Recovering/Resolving]
  - Lung disorder [Recovering/Resolving]
